APPROVED DRUG PRODUCT: ISOPROTERENOL HYDROCHLORIDE
Active Ingredient: ISOPROTERENOL HYDROCHLORIDE
Strength: 0.2MG/ML
Dosage Form/Route: INJECTABLE;INJECTION
Application: A215557 | Product #001
Applicant: ZYDUS PHARMACEUTICALS USA INC
Approved: Apr 14, 2023 | RLD: No | RS: No | Type: DISCN